FAERS Safety Report 13594926 (Version 2)
Quarter: 2017Q2

REPORT INFORMATION
  Report Type: Report from Study
  Country: None (occurrence: IL)
  Receive Date: 20170531
  Receipt Date: 20170601
  Transmission Date: 20170830
  Serious: Yes (Hospitalization)
  Sender: FDA-Public Use
  Company Number: IL-ABBVIE-17K-082-1990212-00

PATIENT
  Age: 37 Year
  Sex: Male

DRUGS (1)
  1. HUMIRA [Suspect]
     Active Substance: ADALIMUMAB
     Indication: AXIAL SPONDYLOARTHRITIS
     Route: 058
     Dates: start: 20151111, end: 2017

REACTIONS (8)
  - Lymphadenopathy [Recovered/Resolved]
  - Neoplasm malignant [Unknown]
  - Asthenia [Recovered/Resolved]
  - Mobility decreased [Recovered/Resolved]
  - C-reactive protein increased [Unknown]
  - Bacterial infection [Unknown]
  - Viral infection [Unknown]
  - Lymphadenopathy [Recovered/Resolved]

NARRATIVE: CASE EVENT DATE: 2016
